FAERS Safety Report 20232015 (Version 1)
Quarter: 2021Q4

REPORT INFORMATION
  Report Type: Spontaneous
  Country: US (occurrence: None)
  Receive Date: 20211223
  Receipt Date: 20211223
  Transmission Date: 20220303
  Serious: No
  Sender: FDA-Public Use
  Company Number: None

PATIENT
  Age: 8 Month
  Sex: Male
  Weight: 8.10 kg

DRUGS (4)
  1. DEVICE [Suspect]
     Active Substance: DEVICE
  2. In-Line Valve (CAPLUG) [Concomitant]
  3. ALBUTEROL [Suspect]
     Active Substance: ALBUTEROL
  4. SALINE [Suspect]
     Active Substance: SODIUM CHLORIDE

REACTIONS (2)
  - Cardiac arrest [None]
  - Pneumothorax [None]

NARRATIVE: CASE EVENT DATE: 20211118
